FAERS Safety Report 17116803 (Version 1)
Quarter: 2019Q4

REPORT INFORMATION
  Report Type: Other
  Country: FR (occurrence: FR)
  Receive Date: 20191205
  Receipt Date: 20191205
  Transmission Date: 20200122
  Serious: Yes (Death)
  Sender: FDA-Public Use
  Company Number: FR-CHIESI USA, INC.-FR-2019CHI000455

PATIENT

DRUGS (3)
  1. CUROSURF [Suspect]
     Active Substance: PORACTANT ALFA
     Indication: PREMATURE BABY
     Dosage: 1 DF, UNK
     Route: 007
     Dates: start: 20190919, end: 20190919
  2. KETAMINE [Suspect]
     Active Substance: KETAMINE
     Indication: SEDATION
     Dosage: UNK
     Route: 042
     Dates: start: 20190919, end: 20190919
  3. MIDAZOLAM [Suspect]
     Active Substance: MIDAZOLAM HYDROCHLORIDE
     Indication: SEDATION
     Dosage: UNK
     Route: 042
     Dates: start: 20190919, end: 20190919

REACTIONS (4)
  - Bronchospasm [Fatal]
  - Oxygen saturation decreased [Fatal]
  - Bradycardia [Fatal]
  - Pneumothorax [Fatal]

NARRATIVE: CASE EVENT DATE: 20190919
